FAERS Safety Report 21932983 (Version 2)
Quarter: 2023Q1

REPORT INFORMATION
  Report Type: Spontaneous
  Country: IN (occurrence: IN)
  Receive Date: 20230131
  Receipt Date: 20230201
  Transmission Date: 20230418
  Serious: Yes (Death, Hospitalization)
  Sender: FDA-Public Use
  Company Number: IN-BAUSCHBL-2023BNL000631

PATIENT
  Age: 50 Year
  Sex: Male

DRUGS (2)
  1. DEXAMETHASONE [Suspect]
     Active Substance: DEXAMETHASONE
     Indication: Prophylaxis against graft versus host disease
     Route: 065
  2. MYCOPHENOLATE MOFETIL [Suspect]
     Active Substance: MYCOPHENOLATE MOFETIL
     Indication: Prophylaxis against graft versus host disease
     Route: 065

REACTIONS (5)
  - Bacteraemia [Fatal]
  - Necrotising fasciitis [Fatal]
  - Fournier^s gangrene [Fatal]
  - Multiple organ dysfunction syndrome [Fatal]
  - Bacterial sepsis [Fatal]
